FAERS Safety Report 7559791-3 (Version None)
Quarter: 2011Q2

REPORT INFORMATION
  Report Type: 
  Country: None (occurrence: None)
  Receive Date: 20110621
  Receipt Date: 20110613
  Transmission Date: 20111010
  Serious: Yes (Other)
  Sender: FDA-Public Use
  Company Number: US-PURDUE-USA-2011-0063242

PATIENT
  Sex: Male

DRUGS (1)
  1. OXYCONTIN [Suspect]
     Indication: PRODUCT USED FOR UNKNOWN INDICATION
     Dosage: 80 MG, UNK

REACTIONS (10)
  - BURNING SENSATION [None]
  - DRUG INEFFECTIVE [None]
  - DRUG EFFECT INCREASED [None]
  - DRUG EFFECT DECREASED [None]
  - RETCHING [None]
  - FALL [None]
  - SPINAL FRACTURE [None]
  - FOREIGN BODY [None]
  - PAIN [None]
  - PRODUCT SIZE ISSUE [None]
